FAERS Safety Report 6522077-X (Version None)
Quarter: 2009Q4

REPORT INFORMATION
  Report Type: 
  Country: None (occurrence: None)
  Receive Date: 20091230
  Receipt Date: 20091221
  Transmission Date: 20100525
  Serious: Yes (Hospitalization, Other)
  Sender: FDA-Public Use
  Company Number: PHHY2009CA57548

PATIENT
  Sex: Female

DRUGS (1)
  1. SANDOSTATIN [Suspect]
     Indication: GASTRINOMA
     Dosage: 100 UG, TID
     Route: 058

REACTIONS (7)
  - DUODENAL PERFORATION [None]
  - DUODENECTOMY [None]
  - ENTERAL NUTRITION [None]
  - GASTRECTOMY [None]
  - NEOPLASM [None]
  - PANCREATECTOMY [None]
  - SURGERY [None]
